FAERS Safety Report 9349066 (Version 2)
Quarter: 2013Q3

REPORT INFORMATION
  Report Type: Spontaneous
  Country: BR (occurrence: BR)
  Receive Date: 20130614
  Receipt Date: 20130906
  Transmission Date: 20140515
  Serious: Yes (Other)
  Sender: FDA-Public Use
  Company Number: BR-BAYER-2013-070157

PATIENT
  Age: 23 Year
  Sex: Female

DRUGS (2)
  1. QLAIRA [Suspect]
     Indication: NAUSEA
     Dosage: 1 DF, QD
     Route: 048
     Dates: start: 2012, end: 201306
  2. QLAIRA [Suspect]
     Indication: ABDOMINAL PAIN

REACTIONS (9)
  - Urinary tract infection [Recovered/Resolved]
  - Depression [Recovered/Resolved]
  - Depressed mood [Recovered/Resolved]
  - Dermatitis allergic [Recovered/Resolved]
  - Dizziness [Recovered/Resolved]
  - Discomfort [Recovered/Resolved]
  - Off label use [None]
  - Hypomenorrhoea [None]
  - Abdominal pain [None]
